FAERS Safety Report 6211614-0 (Version None)
Quarter: 2009Q2

REPORT INFORMATION
  Report Type: 
  Country: None (occurrence: None)
  Receive Date: 20090528
  Receipt Date: 20090512
  Transmission Date: 20091009
  Serious: Yes (Other)
  Sender: FDA-Public Use
  Company Number: 2009S1001748

PATIENT
  Sex: Female
  Weight: 61.2356 kg

DRUGS (9)
  1. PHOSPHOSODA FLAVOR NOT SPECIFIED [Suspect]
     Indication: COLONOSCOPY
     Dosage: 90 ML; TOTAL; PO
     Route: 048
     Dates: start: 20070916, end: 20070916
  2. SYNTHROID [Concomitant]
  3. PROTONIX /01263201/ [Concomitant]
  4. ACTONEL [Concomitant]
  5. LIPITOR [Concomitant]
  6. LISINOPRIL [Concomitant]
  7. CELEXA [Concomitant]
  8. VERSED [Concomitant]
  9. DEMEROL [Concomitant]

REACTIONS (2)
  - HYPERPHOSPHATAEMIA [None]
  - RENAL FAILURE CHRONIC [None]
